FAERS Safety Report 5734299-6 (Version None)
Quarter: 2008Q2

REPORT INFORMATION
  Report Type: 
  Country: None (occurrence: None)
  Receive Date: 20080512
  Receipt Date: 20080430
  Transmission Date: 20081010
  Serious: Yes (Other)
  Sender: FDA-Public Use
  Company Number: JP-BRISTOL-MYERS SQUIBB COMPANY-14183255

PATIENT
  Age: 12 Year
  Sex: Male

DRUGS (6)
  1. ENDOXAN [Suspect]
     Indication: DIFFUSE LARGE B-CELL LYMPHOMA
     Dosage: 1 DOSAGE FORM : 200-1000 MG/M2 FOR 2-4 DAYS. TOTAL DOSE OF 9400 MG/M2, 293 MG/KG.
  2. EPIRUBICIN HCL [Suspect]
     Indication: DIFFUSE LARGE B-CELL LYMPHOMA
     Dosage: TOTAL DOSE OF 300 MG /M2, 9.3 MG/KG.
     Route: 065
  3. PREDONINE [Concomitant]
  4. METHOTREXATE [Concomitant]
  5. ETOPOSIDE [Concomitant]
  6. CYTARABINE [Concomitant]

REACTIONS (1)
  - CARDIOMYOPATHY [None]
